FAERS Safety Report 20003394 (Version 2)
Quarter: 2021Q4

REPORT INFORMATION
  Report Type: Spontaneous
  Country: US (occurrence: US)
  Receive Date: 20211027
  Receipt Date: 20211124
  Transmission Date: 20220303
  Serious: No
  Sender: FDA-Public Use
  Company Number: US-EVOFEM BIOSCIENCES, INC.-2021-EVO-US003380

PATIENT

DRUGS (4)
  1. PHEXXI [Suspect]
     Active Substance: CITRIC ACID MONOHYDRATE\LACTIC ACID, L-\POTASSIUM BITARTRATE
     Indication: Contraception
     Dosage: 5 G, PHEXXI INSERT ONE APPLICATOR BY VAGINAL ROUTE ONCE
     Route: 067
     Dates: start: 2021
  2. AMBIEN [Concomitant]
     Active Substance: ZOLPIDEM TARTRATE
     Indication: Insomnia
     Dosage: 5 MG, DAILY
     Route: 048
  3. KLONOPIN [Concomitant]
     Active Substance: CLONAZEPAM
     Indication: Generalised anxiety disorder
     Dosage: 0.5 MG, DAILY
     Route: 048
  4. KLONOPIN [Concomitant]
     Active Substance: CLONAZEPAM
     Indication: Insomnia

REACTIONS (2)
  - Pregnancy [Not Recovered/Not Resolved]
  - Drug ineffective [Unknown]

NARRATIVE: CASE EVENT DATE: 20211004
